FAERS Safety Report 10383809 (Version 1)
Quarter: 2014Q1

REPORT INFORMATION
  Report Type: Spontaneous
  Country: US (occurrence: None)
  Receive Date: 20140306
  Receipt Date: 20140306
  Transmission Date: 20141002
  Serious: Yes (Other)
  Sender: FDA-Public Use
  Company Number: 163-21880-13113265

PATIENT
  Age: 57 Year
  Sex: Male
  Weight: 121.1 kg

DRUGS (19)
  1. REVLIMID (LENALIDOMIDE) (5 MILLIGRAM, CAPSULES) [Suspect]
     Indication: PLASMA CELL MYELOMA
     Route: 048
     Dates: start: 20110210
  2. AREDIA (PAMIDRONATE DISODIUM) [Concomitant]
  3. VELCADE (BORTEZOMIB) [Concomitant]
  4. DEXAMETHASONE [Concomitant]
  5. ASA (ACETYLSALCYLIC ACID) [Concomitant]
  6. ATENOLOL [Concomitant]
  7. ATORVASTATIN [Concomitant]
  8. DIPHENOXYLATE-ATROPINE (LOMOTIL) [Concomitant]
  9. DRONABINOL [Concomitant]
  10. GABAPENTIN [Concomitant]
  11. GLIMEPIRIDE [Concomitant]
  12. HYDROCODONE-ACETAMINOPHEN (VICODIN) [Concomitant]
  13. METHADONE [Concomitant]
  14. METOLAZONE [Concomitant]
  15. MINOXIDIL [Concomitant]
  16. POTASSIUM BICARBONATE-CITRIC ACID (KALITRANS/OLD FORM) [Concomitant]
  17. SERTRALINE [Concomitant]
  18. WARFARIN [Concomitant]
  19. PAMIDRONATE (PAMIDRONATE DISODIUM) [Concomitant]

REACTIONS (1)
  - Blood creatinine increased [None]
